FAERS Safety Report 20125019 (Version 1)
Quarter: 2021Q4

REPORT INFORMATION
  Report Type: Spontaneous
  Country: US (occurrence: US)
  Receive Date: 20211129
  Receipt Date: 20211129
  Transmission Date: 20220303
  Serious: No
  Sender: FDA-Public Use
  Company Number: US-PFIZER INC-202101622697

PATIENT
  Age: 73 Year
  Sex: Female

DRUGS (2)
  1. LYRICA [Interacting]
     Active Substance: PREGABALIN
     Dosage: UNK
  2. MODERNA COVID-19 VACCINE [Interacting]
     Active Substance: ELASOMERAN
     Dosage: DOSE 3 (BOOSTER), SINGLE

REACTIONS (3)
  - Drug interaction [Unknown]
  - Illness [Unknown]
  - Pyrexia [Unknown]
